FAERS Safety Report 13043426 (Version 1)
Quarter: 2016Q4

REPORT INFORMATION
  Report Type: Spontaneous
  Country: US (occurrence: US)
  Receive Date: 20161220
  Receipt Date: 20161220
  Transmission Date: 20170207
  Serious: Yes (Other)
  Sender: FDA-Public Use
  Company Number: US-TEVA-721527USA

PATIENT
  Sex: Female
  Weight: 79 kg

DRUGS (18)
  1. LYRICA [Concomitant]
     Active Substance: PREGABALIN
  2. FERROUS SULFATE. [Concomitant]
     Active Substance: FERROUS SULFATE
     Route: 048
  3. ENOXAPARIN [Concomitant]
     Active Substance: ENOXAPARIN
     Route: 058
  4. REVATIO [Concomitant]
     Active Substance: SILDENAFIL CITRATE
     Route: 048
  5. TRACLEER [Concomitant]
     Active Substance: BOSENTAN
     Route: 048
  6. OFEV [Concomitant]
     Active Substance: NINTEDANIB
     Route: 048
  7. NORVASC [Concomitant]
     Active Substance: AMLODIPINE BESYLATE
  8. ONDANSETRON [Concomitant]
     Active Substance: ONDANSETRON
     Dosage: 4MG/2ML
     Route: 042
  9. DOCUSATE SODIUM AND SENNA [Concomitant]
     Active Substance: DOCUSATE SODIUM\SENNOSIDES
     Dosage: 8.6-50MG AT BEDTIME
     Route: 048
  10. ACETAMINOPHEN. [Concomitant]
     Active Substance: ACETAMINOPHEN
     Dosage: AS NEEDED
  11. REMODULIN [Suspect]
     Active Substance: TREPROSTINIL
     Route: 058
  12. AMLODIPINE [Concomitant]
     Active Substance: AMLODIPINE BESYLATE
     Route: 048
  13. REMODULIN [Suspect]
     Active Substance: TREPROSTINIL
     Indication: PULMONARY HYPERTENSION
     Route: 058
     Dates: start: 20090806
  14. ASPIRIN. [Concomitant]
     Active Substance: ASPIRIN
     Route: 048
  15. LASIX [Concomitant]
     Active Substance: FUROSEMIDE
     Route: 048
  16. CARVEDIOL [Concomitant]
     Active Substance: CARVEDILOL
     Route: 048
  17. GABAPENTIN. [Suspect]
     Active Substance: GABAPENTIN
     Route: 048
  18. PIOGLITAZONE. [Concomitant]
     Active Substance: PIOGLITAZONE
     Route: 048

REACTIONS (6)
  - Interstitial lung disease [Unknown]
  - Walking distance test abnormal [Unknown]
  - Drug intolerance [Unknown]
  - Pericardial effusion [Unknown]
  - Oxygen saturation decreased [Unknown]
  - Activities of daily living impaired [Unknown]
